FAERS Safety Report 8736564 (Version 3)
Quarter: 2013Q1

REPORT INFORMATION
  Report Type: Report from Study
  Country: JP (occurrence: JP)
  Receive Date: 20120822
  Receipt Date: 20130129
  Transmission Date: 20140127
  Serious: Yes (Death, Life-Threatening, Hospitalization)
  Sender: FDA-Public Use
  Company Number: JP-ABBOTT-03P-087-0233012-00

PATIENT
  Age: 46 Year
  Sex: Male

DRUGS (16)
  1. KALETRA SOFT GELATIN CAPSULES [Suspect]
     Indication: HIV INFECTION
     Route: 048
     Dates: start: 20020903, end: 20040804
  2. KALETRA SOFT GELATIN CAPSULES [Suspect]
     Route: 048
     Dates: start: 20040831, end: 20060921
  3. KALETRA TABLETS 200MG/50MG [Suspect]
     Indication: HIV INFECTION
     Route: 048
     Dates: start: 20061026, end: 20110807
  4. DIDANOSINE [Suspect]
     Indication: HIV INFECTION
     Route: 048
     Dates: start: 20020903, end: 20040804
  5. DIDANOSINE [Suspect]
     Route: 048
     Dates: start: 20040831, end: 20060921
  6. DIDANOSINE [Suspect]
     Route: 048
     Dates: start: 20061026
  7. STAVUDINE [Suspect]
     Indication: HIV INFECTION
     Route: 048
     Dates: start: 20020401, end: 20040804
  8. ABACAVIR [Suspect]
     Indication: HIV INFECTION
     Route: 048
     Dates: start: 20040831, end: 20060921
  9. TENOFOVIR [Suspect]
     Indication: HIV INFECTION
     Route: 048
     Dates: start: 20040831, end: 20060921
  10. ISENTRESS [Suspect]
     Indication: HIV INFECTION
     Route: 048
     Dates: start: 20110807
  11. ALLOPURINOL [Concomitant]
     Indication: HYPERURICAEMIA
     Route: 048
     Dates: start: 20020401, end: 20040804
  12. ALLOPURINOL [Concomitant]
     Route: 048
     Dates: start: 20040831
  13. GLYCYRON [Concomitant]
     Indication: HEPATIC FUNCTION ABNORMAL
     Route: 048
     Dates: start: 20020401, end: 20040804
  14. LOPERAMIDE HYDROCHLORIDE [Concomitant]
     Indication: DIARRHOEA
     Route: 048
     Dates: start: 20040401, end: 20040804
  15. BIFIDOBACTERIUM [Concomitant]
     Indication: DIARRHOEA
     Route: 048
     Dates: start: 20040401, end: 20040804
  16. SAQUINAVIR [Concomitant]
     Indication: HIV INFECTION
     Route: 048
     Dates: start: 20061026, end: 20110807

REACTIONS (5)
  - Cardiac failure [Fatal]
  - Liver disorder [Not Recovered/Not Resolved]
  - Lactic acidosis [Recovered/Resolved]
  - Hypophosphataemia [Recovered/Resolved]
  - Diarrhoea [Recovering/Resolving]
